FAERS Safety Report 12908370 (Version 1)
Quarter: 2016Q4

REPORT INFORMATION
  Report Type: Spontaneous
  Country: FR (occurrence: FR)
  Receive Date: 20161103
  Receipt Date: 20161103
  Transmission Date: 20170207
  Serious: Yes (Other)
  Sender: FDA-Public Use
  Company Number: FR-ASTRAZENECA-2016SF14523

PATIENT
  Age: 17 Year
  Sex: Female

DRUGS (2)
  1. ZOLOFT [Concomitant]
     Active Substance: SERTRALINE HYDROCHLORIDE
     Indication: DECREASED APPETITE
     Dosage: 50 MG 1 CAPSULE PER DAY
  2. XEROQUEL [Suspect]
     Active Substance: QUETIAPINE FUMARATE
     Indication: DECREASED APPETITE
     Route: 048

REACTIONS (4)
  - Off label use [Unknown]
  - Drug administered to patient of inappropriate age [Unknown]
  - Hepatic failure [Unknown]
  - Product use issue [Unknown]
